FAERS Safety Report 5351150-7 (Version None)
Quarter: 2007Q2

REPORT INFORMATION
  Report Type: 
  Country: None (occurrence: None)
  Receive Date: 20070608
  Receipt Date: 20070606
  Transmission Date: 20071010
  Serious: Yes (Life-Threatening)
  Sender: FDA-Public Use
  Company Number: US-BRISTOL-MYERS SQUIBB COMPANY-13358403

PATIENT
  Age: 74 Year
  Sex: Male

DRUGS (4)
  1. CETUXIMAB [Suspect]
     Indication: NON-SMALL CELL LUNG CANCER
     Dosage: INITIATED ON 30-DEC-2005.
     Route: 042
     Dates: start: 20051230, end: 20060512
  2. CARBOPLATIN [Suspect]
     Indication: NON-SMALL CELL LUNG CANCER
     Dosage: INITIATED ON 30-DEC-2005.
     Route: 042
     Dates: start: 20060324, end: 20060324
  3. PACLITAXEL [Suspect]
     Indication: NON-SMALL CELL LUNG CANCER
     Route: 042
     Dates: start: 20060407, end: 20060407
  4. TINZAPARIN [Concomitant]

REACTIONS (1)
  - PULMONARY EMBOLISM [None]
